FAERS Safety Report 22065064 (Version 5)
Quarter: 2024Q3

REPORT INFORMATION
  Report Type: Spontaneous
  Country: GB (occurrence: GB)
  Receive Date: 20230306
  Receipt Date: 20240925
  Transmission Date: 20241016
  Serious: Yes (Other)
  Sender: MYLAN
  Company Number: GB-MYLANLABS-2023M1023116

PATIENT
  Age: 56 Year
  Sex: Male

DRUGS (5)
  1. CLOZARIL [Suspect]
     Active Substance: CLOZAPINE
     Indication: Schizophrenia
     Dosage: UNK
     Route: 048
     Dates: start: 20230228
  2. CLOZARIL [Suspect]
     Active Substance: CLOZAPINE
     Dosage: UNK
     Route: 048
     Dates: start: 20230302
  3. CLOZARIL [Suspect]
     Active Substance: CLOZAPINE
     Dosage: 150 MILLIGRAM, BID (TWICE A DAY)
     Route: 048
     Dates: start: 20230719
  4. ATORVASTATIN [Concomitant]
     Active Substance: ATORVASTATIN
     Dosage: 40 MILLIGRAM, PM (AT NIGHT)
     Route: 065
  5. OMEPRAZOLE [Concomitant]
     Active Substance: OMEPRAZOLE
     Dosage: 20 MILLIGRAM, AM (IN THE MORNING)
     Route: 065

REACTIONS (4)
  - Malaise [Unknown]
  - Pulmonary oedema [Unknown]
  - Neutrophil count decreased [Recovered/Resolved]
  - White blood cell count decreased [Recovered/Resolved]

NARRATIVE: CASE EVENT DATE: 20230704
